FAERS Safety Report 26015450 (Version 1)
Quarter: 2025Q4

REPORT INFORMATION
  Report Type: Spontaneous
  Country: US (occurrence: US)
  Receive Date: 20251109
  Receipt Date: 20251109
  Transmission Date: 20260117
  Serious: Yes (Other)
  Sender: SANOFI AVENTIS
  Company Number: US-SA-2025SA325596

PATIENT
  Age: 24 Year
  Sex: Female
  Weight: 81.82 kg

DRUGS (3)
  1. INSULIN ASPART [Suspect]
     Active Substance: INSULIN ASPART
     Indication: Type 1 diabetes mellitus
     Dosage: 12 IU
  2. ERYTHROMYCIN [Concomitant]
     Active Substance: ERYTHROMYCIN
  3. TOUJEO [Concomitant]
     Active Substance: INSULIN GLARGINE

REACTIONS (4)
  - Impaired gastric emptying [Unknown]
  - Retinal detachment [Unknown]
  - Diabetic retinopathy [Unknown]
  - Blindness [Unknown]

NARRATIVE: CASE EVENT DATE: 20230101
